FAERS Safety Report 25512975 (Version 1)
Quarter: 2025Q3

REPORT INFORMATION
  Report Type: Report from Study
  Country: US (occurrence: US)
  Receive Date: 20250703
  Receipt Date: 20250703
  Transmission Date: 20251020
  Serious: Yes (Hospitalization)
  Sender: GILEAD
  Company Number: US-GILEAD-2025-0719329

PATIENT
  Age: 41 Year
  Sex: Female

DRUGS (1)
  1. AZTREONAM LYSINE [Suspect]
     Active Substance: AZTREONAM LYSINE
     Indication: Product used for unknown indication
     Dosage: 75MG/MLTHREE TIMES A DAY FOR 28 DAYS, FOLLOWED BY 28 DAYS OFF
     Route: 055

REACTIONS (1)
  - Infection [Unknown]
